FAERS Safety Report 7741060-X (Version None)
Quarter: 2011Q3

REPORT INFORMATION
  Report Type: 
  Country: None (occurrence: None)
  Receive Date: 20110909
  Receipt Date: 20110908
  Transmission Date: 20111222
  Serious: Yes (Other)
  Sender: FDA-Public Use
  Company Number: US-PFIZER INC-2011211897

PATIENT
  Sex: Male

DRUGS (1)
  1. CHANTIX [Suspect]
     Dosage: 0.5 MG, 1X/DAY

REACTIONS (4)
  - DRUG DISPENSING ERROR [None]
  - BRONCHITIS [None]
  - DRUG PRESCRIBING ERROR [None]
  - HYPERTENSION [None]
